FAERS Safety Report 10120912 (Version 1)
Quarter: 2014Q2

REPORT INFORMATION
  Report Type: Spontaneous
  Country: US (occurrence: US)
  Receive Date: 20140425
  Receipt Date: 20140425
  Transmission Date: 20141212
  Serious: No
  Sender: FDA-Public Use
  Company Number: US-009507513-1403USA013672

PATIENT
  Age: 50 Year
  Sex: Female
  Weight: 58.5 kg

DRUGS (5)
  1. CLARITIN [Suspect]
     Indication: SEASONAL ALLERGY
     Dosage: 10 MG, BID
     Route: 048
     Dates: start: 20140325, end: 20140325
  2. CLARITIN [Suspect]
     Indication: SINUS CONGESTION
  3. ZOLOFT [Concomitant]
     Indication: PANIC ATTACK
  4. XANAX [Concomitant]
     Indication: NERVOUSNESS
  5. AMOXICILLIN [Concomitant]
     Indication: SINUSITIS

REACTIONS (1)
  - Accidental overdose [Unknown]
